FAERS Safety Report 7819311-2 (Version None)
Quarter: 2011Q4

REPORT INFORMATION
  Report Type: 
  Country: None (occurrence: None)
  Receive Date: 20111018
  Receipt Date: 20101108
  Transmission Date: 20120403
  Serious: No
  Sender: FDA-Public Use
  Company Number: US-ASTRAZENECA-2010SE37276

PATIENT
  Age: 22389 Day
  Sex: Male
  Weight: 81.6 kg

DRUGS (7)
  1. SYMBICORT [Suspect]
     Indication: ASTHMA
     Dosage: 320 MCGS, DAILY
     Route: 055
     Dates: start: 20070101
  2. SYMBICORT [Suspect]
     Indication: CHRONIC OBSTRUCTIVE PULMONARY DISEASE
     Dosage: 320 MCGS, DAILY
     Route: 055
     Dates: start: 20070101
  3. SYMBICORT [Suspect]
     Route: 055
  4. XOLAIR [Concomitant]
  5. SYMBICORT [Suspect]
     Route: 055
  6. SYMBICORT [Suspect]
     Dosage: 1 PUFF OF 80/4.5 MCG AND 1 PUFF OF 160/4.5 MCG BID
     Route: 055
     Dates: start: 20100809
  7. SYMBICORT [Suspect]
     Dosage: 1 PUFF OF 80/4.5 MCG AND 1 PUFF OF 160/4.5 MCG BID
     Route: 055
     Dates: start: 20100809

REACTIONS (3)
  - WHEEZING [None]
  - DRUG DOSE OMISSION [None]
  - DYSPNOEA [None]
